FAERS Safety Report 10153195 (Version 1)
Quarter: 2014Q2

REPORT INFORMATION
  Report Type: Spontaneous
  Country: US (occurrence: US)
  Receive Date: 20140505
  Receipt Date: 20140505
  Transmission Date: 20141212
  Serious: Yes (Hospitalization, Other)
  Sender: FDA-Public Use
  Company Number: US-TEVA-479142USA

PATIENT
  Age: 46 Year
  Sex: Female

DRUGS (2)
  1. NUVIGIL [Suspect]
  2. NUVIGIL [Suspect]

REACTIONS (2)
  - Hysterectomy [Unknown]
  - Multiple sclerosis [Unknown]
